FAERS Safety Report 13347369 (Version 1)
Quarter: 2017Q1

REPORT INFORMATION
  Report Type: Spontaneous
  Country: IT (occurrence: IT)
  Receive Date: 20170317
  Receipt Date: 20170317
  Transmission Date: 20170428
  Serious: Yes (Other)
  Sender: FDA-Public Use
  Company Number: IT-PFIZER INC-2017115373

PATIENT
  Sex: Male

DRUGS (2)
  1. CAVERJECT [Suspect]
     Active Substance: ALPROSTADIL
     Dosage: 20 UG, UNK
  2. CAVERJECT [Suspect]
     Active Substance: ALPROSTADIL
     Dosage: 10 UG, UNK

REACTIONS (3)
  - Malignant melanoma [Unknown]
  - Drug ineffective [Unknown]
  - Expired product administered [Unknown]
